FAERS Safety Report 13825353 (Version 1)
Quarter: 2017Q3

REPORT INFORMATION
  Report Type: Spontaneous
  Country: TW (occurrence: TW)
  Receive Date: 20170802
  Receipt Date: 20170802
  Transmission Date: 20171127
  Serious: Yes (Other)
  Sender: FDA-Public Use
  Company Number: TW-FRESENIUS KABI-FK201706502

PATIENT
  Sex: Male

DRUGS (2)
  1. CISPLATIN (MANUFACTURER UNKNOWN) [Suspect]
     Active Substance: CISPLATIN
     Indication: AESTHESIONEUROBLASTOMA
     Route: 065
     Dates: start: 2013
  2. ETOPOSIDE (MANUFACTURER UNKNOWN) [Suspect]
     Active Substance: ETOPOSIDE
     Indication: AESTHESIONEUROBLASTOMA
     Route: 065
     Dates: start: 2013

REACTIONS (2)
  - Anosmia [Unknown]
  - Sinusitis [Unknown]
